FAERS Safety Report 21418447 (Version 1)
Quarter: 2022Q4

REPORT INFORMATION
  Report Type: Spontaneous
  Country: US (occurrence: None)
  Receive Date: 20221005
  Receipt Date: 20221005
  Transmission Date: 20230113
  Serious: Yes (Disabling)
  Sender: FDA-Public Use
  Company Number: None

PATIENT
  Age: 33 Year
  Sex: Male
  Weight: 119.25 kg

DRUGS (1)
  1. SUBOXONE [Suspect]
     Active Substance: BUPRENORPHINE HYDROCHLORIDE\NALOXONE HYDROCHLORIDE
     Indication: Drug dependence
     Dosage: OTHER QUANTITY : 1 SUBLINGUAL FILMS;?FREQUENCY : TWICE A DAY;?
     Route: 060

REACTIONS (4)
  - Tooth loss [None]
  - Dental caries [None]
  - Tooth injury [None]
  - Emotional distress [None]

NARRATIVE: CASE EVENT DATE: 20180101
